FAERS Safety Report 5135994-2 (Version None)
Quarter: 2006Q4

REPORT INFORMATION
  Report Type: 
  Country: None (occurrence: None)
  Receive Date: 20061020
  Receipt Date: 20061012
  Transmission Date: 20070319
  Serious: Yes (Other)
  Sender: FDA-Public Use
  Company Number: 2006125799

PATIENT
  Age: 36 Year
  Sex: Male

DRUGS (1)
  1. XANAX [Suspect]
     Dates: start: 20030101, end: 20030101

REACTIONS (3)
  - AGGRESSION [None]
  - NERVOUSNESS [None]
  - PARANOIA [None]
